FAERS Safety Report 5979853-1 (Version None)
Quarter: 2008Q4

REPORT INFORMATION
  Report Type: 
  Country: None (occurrence: None)
  Receive Date: 20081205
  Receipt Date: 20081124
  Transmission Date: 20090506
  Serious: Yes (Life-Threatening)
  Sender: FDA-Public Use
  Company Number: CA-WYE-G01880108

PATIENT
  Age: 72 Year
  Sex: Female

DRUGS (1)
  1. RELISTOR [Suspect]
     Indication: CONSTIPATION
     Route: 058
     Dates: start: 20080625, end: 20080717

REACTIONS (5)
  - DEHYDRATION [None]
  - DRUG EFFECT DECREASED [None]
  - FAECALOMA [None]
  - INTESTINAL OBSTRUCTION [None]
  - THERAPEUTIC RESPONSE DELAYED [None]
